FAERS Safety Report 8600610-1 (Version None)
Quarter: 2012Q3

REPORT INFORMATION
  Report Type: 
  Country: None (occurrence: None)
  Receive Date: 20120803
  Receipt Date: 20120730
  Transmission Date: 20120928
  Serious: Yes (Other)
  Sender: FDA-Public Use
  Company Number: GER/UKI/12/0025247

PATIENT
  Age: 73 Year
  Sex: Male

DRUGS (1)
  1. CLOPIDOGREL [Suspect]
     Indication: PRODUCT USED FOR UNKNOWN INDICATION
     Dosage: 75 MG,  1 IN 1 D, UNKNOWN

REACTIONS (6)
  - BLOOD CHOLESTEROL ABNORMAL [None]
  - PAIN [None]
  - THROAT CANCER [None]
  - HYPERTENSION [None]
  - OEDEMA [None]
  - DYSPHAGIA [None]
